FAERS Safety Report 14625224 (Version 1)
Quarter: 2018Q1

REPORT INFORMATION
  Report Type: Report from Study
  Country: KR (occurrence: KR)
  Receive Date: 20180312
  Receipt Date: 20180312
  Transmission Date: 20180509
  Serious: No
  Sender: FDA-Public Use
  Company Number: KR-B.I. PHARMACEUTICALS,INC./RIDGEFIELD-2018-BI-012238

PATIENT
  Age: 73 Year
  Sex: Male

DRUGS (5)
  1. ATOZET [Concomitant]
     Active Substance: ATORVASTATIN CALCIUM\EZETIMIBE
     Indication: DYSLIPIDAEMIA
     Dosage: DAILY DOSE: 1T MG
     Route: 048
     Dates: start: 20160330
  2. ASPIRIN PROTECT [Concomitant]
     Active Substance: ASPIRIN
     Indication: HYPERTENSION
     Route: 048
     Dates: start: 20090108
  3. EVOPRIM [Concomitant]
     Indication: DIABETIC NEUROPATHY
     Route: 048
     Dates: start: 20120709
  4. TRITACE [Concomitant]
     Active Substance: RAMIPRIL
     Indication: HYPERTENSION
     Route: 048
     Dates: start: 20171122
  5. JARDIANCE [Suspect]
     Active Substance: EMPAGLIFLOZIN
     Indication: TYPE 2 DIABETES MELLITUS
     Route: 048
     Dates: start: 20170719, end: 20180213

REACTIONS (1)
  - Orchitis [Not Recovered/Not Resolved]

NARRATIVE: CASE EVENT DATE: 201801
